FAERS Safety Report 6938348-9 (Version None)
Quarter: 2010Q3

REPORT INFORMATION
  Report Type: 
  Country: None (occurrence: None)
  Receive Date: 20100824
  Receipt Date: 20100812
  Transmission Date: 20110219
  Serious: Yes (Death)
  Sender: FDA-Public Use
  Company Number: US-PFIZER INC-2010101814

PATIENT
  Age: 67 Year
  Sex: Male
  Weight: 58 kg

DRUGS (4)
  1. CHANTIX [Suspect]
     Indication: SMOKING CESSATION THERAPY
     Dosage: UNK
     Route: 048
  2. VICODIN [Concomitant]
     Indication: PAIN
     Dosage: UNK
     Route: 048
  3. LEXAPRO [Concomitant]
     Dosage: UNK
     Route: 048
  4. ACETAMINOPHEN [Concomitant]
     Dosage: UNK
     Route: 048

REACTIONS (1)
  - DEATH [None]
